FAERS Safety Report 13189704 (Version 1)
Quarter: 2017Q1

REPORT INFORMATION
  Report Type: Report from Study
  Country: US (occurrence: US)
  Receive Date: 20170206
  Receipt Date: 20170206
  Transmission Date: 20170428
  Serious: No
  Sender: FDA-Public Use
  Company Number: PHEH2017US003703

PATIENT
  Sex: Male

DRUGS (1)
  1. SIGNIFOR LAR [Suspect]
     Active Substance: PASIREOTIDE
     Indication: PITUITARY TUMOUR BENIGN
     Dosage: 40 MG, QMO (ONCE A MONTH)
     Route: 030

REACTIONS (1)
  - Drug ineffective [Unknown]
